FAERS Safety Report 4581178-6 (Version None)
Quarter: 2005Q1

REPORT INFORMATION
  Report Type: 
  Country: None (occurrence: None)
  Receive Date: 20050214
  Receipt Date: 20040825
  Transmission Date: 20050727
  Serious: No
  Sender: FDA-Public Use
  Company Number: US-GLAXOSMITHKLINE-A0523450A

PATIENT
  Age: 64 Year
  Sex: Female

DRUGS (9)
  1. LAMICTAL [Suspect]
     Indication: BIPOLAR DISORDER
     Dosage: 100MG TWICE PER DAY
     Route: 048
  2. EFFEXOR [Concomitant]
  3. LIPITOR [Concomitant]
  4. ZETIA [Concomitant]
  5. PREMARIN [Concomitant]
  6. AVALIDE [Concomitant]
  7. FOLIC ACID [Concomitant]
  8. EFFEXOR [Concomitant]
  9. PLAVIX [Concomitant]

REACTIONS (2)
  - HYPOAESTHESIA [None]
  - RASH [None]
